FAERS Safety Report 15962324 (Version 1)
Quarter: 2019Q1

REPORT INFORMATION
  Report Type: Spontaneous
  Country: IN (occurrence: IN)
  Receive Date: 20190214
  Receipt Date: 20190214
  Transmission Date: 20190417
  Serious: Yes (Other)
  Sender: FDA-Public Use
  Company Number: IN-ALLERGAN-1906076US

PATIENT
  Age: 41 Year

DRUGS (1)
  1. PREDNISOLONE UNK [Suspect]
     Active Substance: PREDNISOLONE
     Indication: IRIDOCYCLITIS
     Dosage: UNK UNK, UNKNOWN
     Route: 047

REACTIONS (1)
  - Chorioretinopathy [Unknown]
